FAERS Safety Report 10173727 (Version 1)
Quarter: 2014Q2

REPORT INFORMATION
  Report Type: Spontaneous
  Country: AU (occurrence: AU)
  Receive Date: 20140515
  Receipt Date: 20140515
  Transmission Date: 20141212
  Serious: Yes (Life-Threatening, Hospitalization, Other)
  Sender: FDA-Public Use
  Company Number: AU-PFIZER INC-2014130564

PATIENT
  Age: 52 Year
  Sex: Female

DRUGS (2)
  1. LINCOMYCIN HCL [Suspect]
     Indication: RESPIRATORY TRACT INFECTION
     Dosage: 500 MG, 4X/DAY FOR 10 DAYS
     Route: 048
     Dates: start: 19740712, end: 19740721
  2. LINCOMYCIN HYDROCHLORIDE [Suspect]
     Indication: RESPIRATORY TRACT INFECTION
     Dosage: 600 MG, 2X/DAY FOR 5 DAYS
     Route: 030
     Dates: start: 19740707, end: 19740711

REACTIONS (2)
  - Pseudomembranous colitis [Recovered/Resolved]
  - Megacolon [Recovered/Resolved]
